FAERS Safety Report 20781934 (Version 1)
Quarter: 2022Q2

REPORT INFORMATION
  Report Type: Spontaneous
  Country: US (occurrence: US)
  Receive Date: 20220504
  Receipt Date: 20220504
  Transmission Date: 20220721
  Serious: Yes (Other)
  Sender: FDA-Public Use
  Company Number: US-SUN PHARMACEUTICAL INDUSTRIES LTD-2022R1-334865

PATIENT
  Age: 69 Year
  Sex: Female

DRUGS (3)
  1. METHYLPREDNISOLONE [Suspect]
     Active Substance: METHYLPREDNISOLONE
     Indication: Autoimmune myocarditis
     Dosage: 500 MILLIGRAM, DAILY FOR 5 DAYS
     Route: 042
  2. PREDNISONE [Suspect]
     Active Substance: PREDNISONE
     Indication: Autoimmune myocarditis
     Dosage: 1 MILLIGRAM/KILOGRAM
     Route: 048
  3. SODIUM SUCCINATE [Suspect]
     Active Substance: SODIUM SUCCINATE HEXAHYDRATE
     Indication: Autoimmune myocarditis
     Dosage: 500 MILLIGRAM, DAILY FOR 5 DAYS
     Route: 042

REACTIONS (1)
  - Condition aggravated [Unknown]
